FAERS Safety Report 5194714-6 (Version None)
Quarter: 2006Q4

REPORT INFORMATION
  Report Type: 
  Country: None (occurrence: None)
  Receive Date: 20061229
  Receipt Date: 20061123
  Transmission Date: 20070319
  Serious: Yes (Hospitalization)
  Sender: FDA-Public Use
  Company Number: PHHO2006TR19823

PATIENT
  Age: 25 Year
  Sex: Male

DRUGS (6)
  1. NEORAL [Suspect]
     Indication: RENAL TRANSPLANT
     Dosage: 100 MG, BID
     Route: 048
     Dates: start: 20061005
  2. NEORAL [Suspect]
     Dosage: 175 MG / DAY
     Route: 048
  3. CERTICAN [Suspect]
     Indication: RENAL TRANSPLANT
     Dosage: 1.5 MG DAILY
     Route: 048
     Dates: start: 20061004
  4. CERTICAN [Suspect]
     Route: 048
  5. PREDNISONE TAB [Concomitant]
     Indication: RENAL TRANSPLANT
     Dosage: 10 MG DAILY
     Route: 048
     Dates: start: 20061005
  6. METHYLPREDNISOLONE 16MG TAB [Concomitant]
     Dosage: 10 MG DAILY
     Route: 048
     Dates: start: 20061005

REACTIONS (7)
  - DYSURIA [None]
  - ESCHERICHIA URINARY TRACT INFECTION [None]
  - HAEMATURIA [None]
  - POST PROCEDURAL URINE LEAK [None]
  - PYREXIA [None]
  - SURGERY [None]
  - URINARY TRACT DISORDER [None]
